FAERS Safety Report 22114224 (Version 1)
Quarter: 2023Q1

REPORT INFORMATION
  Report Type: Spontaneous
  Country: US (occurrence: US)
  Receive Date: 20230320
  Receipt Date: 20230320
  Transmission Date: 20230418
  Serious: No
  Sender: FDA-Public Use
  Company Number: US-SANOFI-01535473

PATIENT
  Age: 56 Year
  Sex: Female

DRUGS (1)
  1. DUPIXENT [Suspect]
     Active Substance: DUPILUMAB
     Dosage: UNK

REACTIONS (12)
  - Phlebitis [Recovered/Resolved with Sequelae]
  - Eye infection [Recovering/Resolving]
  - Abdominal pain upper [Unknown]
  - Fatigue [Unknown]
  - Dry mouth [Unknown]
  - Condition aggravated [Unknown]
  - Eyelid ptosis [Recovering/Resolving]
  - Vision blurred [Recovering/Resolving]
  - Swelling of eyelid [Recovering/Resolving]
  - Erythema of eyelid [Recovering/Resolving]
  - Arthralgia [Unknown]
  - Dry eye [Recovering/Resolving]
